FAERS Safety Report 25363113 (Version 1)
Quarter: 2025Q2

REPORT INFORMATION
  Report Type: Spontaneous
  Country: US (occurrence: US)
  Receive Date: 20250527
  Receipt Date: 20250527
  Transmission Date: 20250717
  Serious: No
  Sender: MYLAN
  Company Number: US-MYLANLABS-2025M1043194

PATIENT
  Age: 72 Year
  Sex: Female

DRUGS (1)
  1. LATANOPROST [Suspect]
     Active Substance: LATANOPROST
     Indication: Product used for unknown indication

REACTIONS (1)
  - Eye irritation [Unknown]
